FAERS Safety Report 6964408-2 (Version None)
Quarter: 2010Q3

REPORT INFORMATION
  Report Type: 
  Country: None (occurrence: None)
  Receive Date: 20100903
  Receipt Date: 20100824
  Transmission Date: 20110219
  Serious: Yes (Other)
  Sender: FDA-Public Use
  Company Number: US-PFIZER INC-2010107350

PATIENT
  Sex: Male

DRUGS (2)
  1. LYRICA [Suspect]
     Indication: HEADACHE
     Dosage: 450 MG/DAY
  2. CIPRO [Suspect]
     Indication: PROSTATITIS
     Dosage: UNK

REACTIONS (3)
  - HEADACHE [None]
  - MALE SEXUAL DYSFUNCTION [None]
  - PROSTATITIS [None]
